FAERS Safety Report 7411651-4 (Version None)
Quarter: 2011Q2

REPORT INFORMATION
  Report Type: 
  Country: None (occurrence: None)
  Receive Date: 20110413
  Receipt Date: 20101012
  Transmission Date: 20111010
  Serious: Yes (Other)
  Sender: FDA-Public Use
  Company Number: US-BRISTOL-MYERS SQUIBB COMPANY-15329196

PATIENT
  Age: 51 Year
  Sex: Female

DRUGS (4)
  1. BENADRYL [Concomitant]
  2. ZANTAC [Concomitant]
  3. ERBITUX [Suspect]
     Indication: HEAD AND NECK CANCER
     Dates: start: 20100927
  4. STEROIDS [Concomitant]
     Indication: PREMEDICATION
     Dosage: PATIENT ALSO TOOK INTRAVENOUS STEROIDS
     Route: 048

REACTIONS (3)
  - VOMITING [None]
  - DIARRHOEA [None]
  - HYPERSENSITIVITY [None]
